FAERS Safety Report 9298368 (Version 1)
Quarter: 2013Q2

REPORT INFORMATION
  Report Type: Report from Study
  Country: CA (occurrence: CA)
  Receive Date: 20130520
  Receipt Date: 20130520
  Transmission Date: 20140414
  Serious: Yes (Other)
  Sender: FDA-Public Use
  Company Number: CA-JNJFOC-20130509821

PATIENT
  Age: 53 Year
  Sex: Female
  Weight: 102.8 kg

DRUGS (15)
  1. REMICADE [Suspect]
     Indication: CROHN^S DISEASE
     Route: 042
     Dates: start: 20090821
  2. SYNTHROID [Concomitant]
     Route: 065
  3. CELEXA [Concomitant]
     Route: 065
  4. GABAPENTIN [Concomitant]
     Route: 065
  5. PANTOLOC [Concomitant]
     Route: 065
  6. HYDROMORPHONE [Concomitant]
     Route: 065
  7. CLONAZEPAM [Concomitant]
     Route: 065
  8. LASIX [Concomitant]
     Route: 065
  9. BACLOPAR [Concomitant]
     Route: 065
  10. SPIRONOLACTONE [Concomitant]
     Route: 065
  11. ZOPICLONE [Concomitant]
     Route: 065
  12. SEROQUEL [Concomitant]
     Route: 065
  13. CYMBALTA [Concomitant]
     Route: 065
  14. PRAMIN [Concomitant]
     Route: 065
  15. SENOKOT [Concomitant]
     Route: 065

REACTIONS (1)
  - Withdrawal syndrome [Recovered/Resolved]
